FAERS Safety Report 5248003-1 (Version None)
Quarter: 2007Q1

REPORT INFORMATION
  Report Type: 
  Country: None (occurrence: None)
  Receive Date: 20070227
  Receipt Date: 20070216
  Transmission Date: 20070707
  Serious: Yes (Hospitalization, Other)
  Sender: FDA-Public Use
  Company Number: FR-BRISTOL-MYERS SQUIBB COMPANY-13369350

PATIENT
  Age: 45 Year
  Sex: Female
  Weight: 56 kg

DRUGS (4)
  1. SUSTIVA [Suspect]
     Indication: HIV INFECTION
     Dosage: STOPPED IN FEB-2006 AND RESTARTED IN THE BEGINNING OF DEC-2006
     Route: 048
     Dates: start: 19990101
  2. VIRAMUNE [Concomitant]
     Indication: HIV INFECTION
     Dates: start: 20060201
  3. EPIVIR [Concomitant]
     Indication: HIV INFECTION
  4. KALETRA [Concomitant]
     Indication: HIV INFECTION

REACTIONS (7)
  - AMNESIA [None]
  - CONFUSIONAL STATE [None]
  - DELUSION [None]
  - HALLUCINATION [None]
  - HEPATIC CIRRHOSIS [None]
  - OPTIC NEURITIS [None]
  - SOMNOLENCE [None]
